FAERS Safety Report 16157121 (Version 1)
Quarter: 2019Q2

REPORT INFORMATION
  Report Type: Spontaneous
  Country: CA (occurrence: CA)
  Receive Date: 20190404
  Receipt Date: 20190404
  Transmission Date: 20190711
  Serious: Yes (Other)
  Sender: FDA-Public Use
  Company Number: CA-ABBVIE-19S-028-2729451-00

PATIENT
  Sex: Female

DRUGS (1)
  1. LUPRON DEPOT [Suspect]
     Active Substance: LEUPROLIDE ACETATE
     Indication: ENDOMETRIOSIS
     Route: 030

REACTIONS (4)
  - Drug ineffective [Unknown]
  - Endometriosis [Not Recovered/Not Resolved]
  - Pelvic venous thrombosis [Unknown]
  - Surgery [Unknown]

NARRATIVE: CASE EVENT DATE: 2017
